FAERS Safety Report 4344973-4 (Version None)
Quarter: 2004Q2

REPORT INFORMATION
  Report Type: 
  Country: None (occurrence: None)
  Receive Date: 20040421
  Receipt Date: 20040421
  Transmission Date: 20050107
  Serious: Yes (Other)
  Sender: FDA-Public Use
  Company Number: None

PATIENT
  Age: 26 Year
  Sex: Female
  Weight: 52.1637 kg

DRUGS (2)
  1. DEPO-MEDROL [Suspect]
     Dosage: 80 MGS SYNOVIAL
     Route: 050
     Dates: start: 20030101
  2. XYLOCAINE [Suspect]
     Dosage: SYNOVIAL
     Route: 050

REACTIONS (8)
  - DERMATITIS EXFOLIATIVE [None]
  - DRY SKIN [None]
  - EYELID OEDEMA [None]
  - PAIN [None]
  - RASH ERYTHEMATOUS [None]
  - RASH MACULO-PAPULAR [None]
  - RASH PRURITIC [None]
  - SKIN ATROPHY [None]
